FAERS Safety Report 9409787 (Version 1)
Quarter: 2013Q3

REPORT INFORMATION
  Report Type: Report from Study
  Country: US (occurrence: US)
  Receive Date: 20130719
  Receipt Date: 20130719
  Transmission Date: 20140515
  Serious: Yes (Hospitalization, Other)
  Sender: FDA-Public Use
  Company Number: US-ASTELLAS-2013US007615

PATIENT
  Sex: Female

DRUGS (1)
  1. ERLOTINIB TABLET [Suspect]
     Indication: LUNG NEOPLASM MALIGNANT
     Dosage: UNK
     Route: 048
     Dates: end: 20130602

REACTIONS (8)
  - Oesophageal disorder [Unknown]
  - Aspiration [Unknown]
  - Hypophagia [Unknown]
  - Eating disorder [Unknown]
  - Drug intolerance [Unknown]
  - Kidney infection [Unknown]
  - Cystitis [Unknown]
  - Malaise [Unknown]
